FAERS Safety Report 9104072 (Version 4)
Quarter: 2013Q3

REPORT INFORMATION
  Report Type: Spontaneous
  Country: US (occurrence: US)
  Receive Date: 20130219
  Receipt Date: 20130805
  Transmission Date: 20140515
  Serious: Yes (Other)
  Sender: FDA-Public Use
  Company Number: US-009507513-1302USA008270

PATIENT
  Sex: Male
  Weight: 117.1 kg

DRUGS (3)
  1. PEGINTRON [Suspect]
     Indication: CHRONIC HEPATITIS C
     Dosage: UNK
     Dates: start: 20120818
  2. REBETOL [Suspect]
     Indication: CHRONIC HEPATITIS C
     Dosage: UNK
     Route: 048
     Dates: start: 20120818
  3. VICTRELIS [Suspect]
     Indication: CHRONIC HEPATITIS C
     Dosage: UNK
     Route: 048
     Dates: start: 20120908, end: 20130415

REACTIONS (14)
  - Weight decreased [Unknown]
  - Mood swings [Unknown]
  - Blood disorder [Unknown]
  - Lymphatic disorder [Unknown]
  - Dysgeusia [Recovering/Resolving]
  - Insomnia [Unknown]
  - Fatigue [Unknown]
  - Nausea [Unknown]
  - Anaemia [Unknown]
  - Haemoglobin decreased [Unknown]
  - Decreased appetite [Recovering/Resolving]
  - Pain [Unknown]
  - Depression [Unknown]
  - Dry mouth [Unknown]
